FAERS Safety Report 5767830-5 (Version None)
Quarter: 2008Q2

REPORT INFORMATION
  Report Type: 
  Country: None (occurrence: None)
  Receive Date: 20080612
  Receipt Date: 20080604
  Transmission Date: 20081010
  Serious: Yes (Other)
  Sender: FDA-Public Use
  Company Number: PHHY2008CA10139

PATIENT

DRUGS (4)
  1. CO-DIOVAN T32564+ [Suspect]
     Indication: HYPERTENSION
     Route: 048
  2. CALCIUM CHANNEL BLOCKERS [Concomitant]
  3. BETA BLOCKING AGENTS [Concomitant]
  4. CLONIDINE [Concomitant]
     Dosage: 0.1 MG, BID

REACTIONS (1)
  - MICROALBUMINURIA [None]
